FAERS Safety Report 5763207-7 (Version None)
Quarter: 2008Q2

REPORT INFORMATION
  Report Type: 
  Country: None (occurrence: None)
  Receive Date: 20080604
  Receipt Date: 20080522
  Transmission Date: 20081010
  Serious: Yes (Other)
  Sender: FDA-Public Use
  Company Number: S06-USA-04273-01

PATIENT
  Age: 64 Year
  Sex: Female

DRUGS (8)
  1. THYROID TAB [Suspect]
     Indication: HYPOTHYROIDISM
     Dosage: 120 MG QD PO
     Route: 048
     Dates: start: 19970101
  2. HYDROCRLOROTHIAZTDE [Concomitant]
  3. DIGITALIS TAB [Concomitant]
  4. FUROSEMIDE [Concomitant]
  5. VITAMIN B COMPLEX CAP [Concomitant]
  6. POTASSIUM CHLORIDE [Concomitant]
  7. MULTI-VITAMIN [Concomitant]
  8. GARLIC [Concomitant]

REACTIONS (6)
  - ABNORMAL SENSATION IN EYE [None]
  - BLOOD PARATHYROID HORMONE INCREASED [None]
  - FEAR [None]
  - NEPHROLITHIASIS [None]
  - OEDEMA PERIPHERAL [None]
  - SWELLING FACE [None]
